FAERS Safety Report 15094344 (Version 1)
Quarter: 2018Q2

REPORT INFORMATION
  Report Type: Spontaneous
  Country: US (occurrence: US)
  Receive Date: 20180630
  Receipt Date: 20180630
  Transmission Date: 20180711
  Serious: Yes (Other)
  Sender: FDA-Public Use
  Company Number: US-AMGEN-USASP2018084452

PATIENT
  Age: 26 Year
  Sex: Female

DRUGS (1)
  1. NPLATE [Suspect]
     Active Substance: ROMIPLOSTIM
     Indication: THROMBOCYTOPENIA
     Dosage: 1 MCG/KG, UNK
     Route: 065

REACTIONS (7)
  - Uterine atony [Unknown]
  - Maternal exposure during pregnancy [Unknown]
  - Viral infection [Recovered/Resolved]
  - Pyrexia [Recovered/Resolved]
  - Bone pain [Recovered/Resolved]
  - Pharyngitis [Recovered/Resolved]
  - Arthralgia [Recovered/Resolved]
